FAERS Safety Report 16084225 (Version 1)
Quarter: 2019Q2

REPORT INFORMATION
  Report Type: Spontaneous
  Country: US (occurrence: US)
  Receive Date: 20190316
  Receipt Date: 20190316
  Transmission Date: 20190711
  Serious: Yes (Life-Threatening, Hospitalization)
  Sender: FDA-Public Use
  Company Number: None

PATIENT
  Age: 57 Year
  Sex: Female
  Weight: 68.4 kg

DRUGS (1)
  1. VALSARTAN HYDRO CHLOROTHIAZIDE TABLETS 160-25MG [Suspect]
     Active Substance: HYDROCHLOROTHIAZIDE\VALSARTAN
     Indication: HYPERTENSION
     Route: 048

REACTIONS (3)
  - Hepatic artery aneurysm [None]
  - Breast cancer [None]
  - Recalled product [None]

NARRATIVE: CASE EVENT DATE: 20140528
